FAERS Safety Report 17692241 (Version 7)
Quarter: 2020Q2

REPORT INFORMATION
  Report Type: Spontaneous
  Country: US (occurrence: US)
  Receive Date: 20200422
  Receipt Date: 20200618
  Transmission Date: 20200714
  Serious: No
  Sender: FDA-Public Use
  Company Number: US-PFIZER INC-2020156856

PATIENT
  Age: 64 Year
  Sex: Male
  Weight: 77.11 kg

DRUGS (11)
  1. KEYTRUDA [Suspect]
     Active Substance: PEMBROLIZUMAB
     Indication: RENAL CANCER RECURRENT
     Dosage: UNK, MONTHLY (INFUSION ONCE MONTHLY)
     Dates: start: 202002
  2. INLYTA [Suspect]
     Active Substance: AXITINIB
     Dosage: 1 DF, 2X/DAY
     Route: 048
     Dates: start: 202002
  3. TAMSULOSIN [Concomitant]
     Active Substance: TAMSULOSIN
     Dosage: 10 MG, 1X/DAY
     Dates: start: 202002
  4. TAMSULOSIN [Concomitant]
     Active Substance: TAMSULOSIN
     Indication: PROSTATIC DISORDER
     Dosage: 4 MG, 1X/DAY
     Route: 048
  5. FINASTERIDE. [Concomitant]
     Active Substance: FINASTERIDE
     Indication: PROSTATIC DISORDER
     Dosage: 5 MG, DAILY
     Route: 048
  6. PROSCAR [Concomitant]
     Active Substance: FINASTERIDE
     Indication: PROSTATIC DISORDER
     Dosage: 10 MG, 1X/DAY
     Dates: start: 202002
  7. INLYTA [Suspect]
     Active Substance: AXITINIB
     Dosage: 5 MG, 2X/DAY (12 HOURS APART)
     Route: 048
     Dates: start: 202003
  8. INLYTA [Suspect]
     Active Substance: AXITINIB
     Indication: RENAL CANCER RECURRENT
     Dosage: 5 MG, TWICE DAILY (AT 7 AM AND 7PM)
     Route: 048
  9. BACLOFEN. [Concomitant]
     Active Substance: BACLOFEN
     Indication: MULTIPLE SCLEROSIS
     Dosage: 10 MG, AS NEEDED
  10. AMBIEN [Concomitant]
     Active Substance: ZOLPIDEM TARTRATE
     Indication: SLEEP DISORDER
     Dosage: UNK, AS NEEDED (TAKE AS NEEDED FOR SLEEP)
  11. KEYTRUDA [Suspect]
     Active Substance: PEMBROLIZUMAB
     Dosage: UNK
     Dates: start: 202003

REACTIONS (7)
  - Balance disorder [Recovering/Resolving]
  - Testicular swelling [Unknown]
  - Sleep disorder [Recovering/Resolving]
  - Aphthous ulcer [Recovering/Resolving]
  - Dysphonia [Not Recovered/Not Resolved]
  - Anxiety [Recovering/Resolving]
  - Dry mouth [Unknown]

NARRATIVE: CASE EVENT DATE: 2020
